FAERS Safety Report 7171463-6 (Version None)
Quarter: 2010Q4

REPORT INFORMATION
  Report Type: 
  Country: None (occurrence: None)
  Receive Date: 20101123
  Receipt Date: 20100903
  Transmission Date: 20110411
  Serious: No
  Sender: FDA-Public Use
  Company Number: 016839

PATIENT
  Sex: Female

DRUGS (2)
  1. CIMZIA [Suspect]
     Indication: CROHN'S DISEASE
     Dosage: (SUBCUTANEOUS)
     Route: 058
  2. PREDNISONE [Concomitant]

REACTIONS (5)
  - CROHN'S DISEASE [None]
  - GLOSSODYNIA [None]
  - HEADACHE [None]
  - LOCALISED INFECTION [None]
  - OROPHARYNGEAL PAIN [None]
